FAERS Safety Report 9252695 (Version 1)
Quarter: 2013Q2

REPORT INFORMATION
  Report Type: Spontaneous
  Country: IT (occurrence: IT)
  Receive Date: 20130424
  Receipt Date: 20130424
  Transmission Date: 20140414
  Serious: Yes (Hospitalization)
  Sender: FDA-Public Use
  Company Number: IT-GLAXOSMITHKLINE-B0886548A

PATIENT
  Age: 62 Year
  Sex: Female

DRUGS (4)
  1. LAMICTAL [Suspect]
     Indication: DRUG ABUSE
     Route: 048
     Dates: start: 20130314, end: 20130314
  2. TRITTICO [Suspect]
     Indication: DRUG ABUSE
     Route: 048
     Dates: start: 20130314, end: 20130314
  3. EN [Suspect]
     Indication: DRUG ABUSE
     Route: 065
     Dates: start: 20130314, end: 20130314
  4. PROZAC [Suspect]
     Indication: DRUG ABUSE
     Dosage: 4UNIT PER DAY
     Route: 065
     Dates: start: 20130314, end: 20130314

REACTIONS (2)
  - Drug abuse [Unknown]
  - Confusional state [Unknown]
